FAERS Safety Report 8564292-X (Version None)
Quarter: 2012Q3

REPORT INFORMATION
  Report Type: 
  Country: None (occurrence: None)
  Receive Date: 20120803
  Receipt Date: 20120524
  Transmission Date: 20120928
  Serious: Yes (Other)
  Sender: FDA-Public Use
  Company Number: US-JNJFOC-20120519262

PATIENT
  Age: 60 Year
  Sex: Female
  Weight: 113.4 kg

DRUGS (3)
  1. MINOXIDIL [Suspect]
     Indication: ALOPECIA
     Dosage: 1/2 CAPFUL
     Route: 061
     Dates: start: 20120501, end: 20120523
  2. MINOXIDIL [Suspect]
     Route: 061
  3. UNKNOWN MEDICATION [Concomitant]
     Route: 065

REACTIONS (2)
  - WRONG DRUG ADMINISTERED [None]
  - HALLUCINATION [None]
